FAERS Safety Report 10971100 (Version 1)
Quarter: 2015Q1

REPORT INFORMATION
  Report Type: Report from Study
  Country: TR (occurrence: TR)
  Receive Date: 20150331
  Receipt Date: 20150331
  Transmission Date: 20150721
  Serious: Yes (Other)
  Sender: FDA-Public Use
  Company Number: TR-BAYER-2015-064302

PATIENT
  Age: 13 Year
  Sex: Female

DRUGS (3)
  1. BUDESONIDE. [Concomitant]
     Active Substance: BUDESONIDE
     Indication: ASTHMA
     Dosage: 320 MCG
  2. IBUPROFEN [IBUPROFEN] [Suspect]
     Active Substance: IBUPROFEN
     Indication: DRUG PROVOCATION TEST
     Route: 048
  3. NAPROXEN SODIUM. [Suspect]
     Active Substance: NAPROXEN SODIUM
     Indication: DRUG PROVOCATION TEST
     Route: 048

REACTIONS (6)
  - Drug hypersensitivity [None]
  - Nasal congestion [None]
  - Urticaria [None]
  - Allergic respiratory disease [None]
  - Rhinorrhoea [None]
  - Angioedema [None]
